FAERS Safety Report 8018801-X (Version None)
Quarter: 2011Q4

REPORT INFORMATION
  Report Type: 
  Country: None (occurrence: None)
  Receive Date: 20111229
  Receipt Date: 20111215
  Transmission Date: 20120403
  Serious: Yes (Other)
  Sender: FDA-Public Use
  Company Number: 2011-5221

PATIENT
  Age: 48 Year
  Sex: Female

DRUGS (2)
  1. DYSPORT [Suspect]
     Indication: SKIN WRINKLING
     Dosage: 36 UNITS (36 UNITS,SINGLE CYCLE)
     Dates: start: 20110502, end: 20110502
  2. UNSPECIFIED MULTIVITAMINS (MULTIVITAMINS) [Concomitant]

REACTIONS (1)
  - NEOPLASM MALIGNANT [None]
